FAERS Safety Report 13644756 (Version 1)
Quarter: 2017Q2

REPORT INFORMATION
  Report Type: Spontaneous
  Country: US (occurrence: US)
  Receive Date: 20170612
  Receipt Date: 20170612
  Transmission Date: 20170830
  Serious: No
  Sender: FDA-Public Use
  Company Number: US-ROCHE-1376006

PATIENT
  Sex: Female

DRUGS (1)
  1. XELODA [Suspect]
     Active Substance: CAPECITABINE
     Indication: MALIGNANT NEOPLASM OF THORAX
     Dosage: MORNING AND AFTER DINNER, 7 DAYS ON 7DAYS OFF
     Route: 065

REACTIONS (7)
  - Pruritus [Unknown]
  - Photosensitivity reaction [Unknown]
  - Hypohidrosis [Unknown]
  - Palmar-plantar erythrodysaesthesia syndrome [Unknown]
  - Feeling hot [Unknown]
  - Dry skin [Unknown]
  - Arthritis [Unknown]
